FAERS Safety Report 7308594-3 (Version None)
Quarter: 2011Q1

REPORT INFORMATION
  Report Type: 
  Country: None (occurrence: None)
  Receive Date: 20110223
  Receipt Date: 20110221
  Transmission Date: 20110831
  Serious: Yes (Life-Threatening, Hospitalization)
  Sender: FDA-Public Use
  Company Number: JP-PFIZER INC-2011037830

PATIENT
  Sex: Male

DRUGS (8)
  1. ZOLOFT [Suspect]
     Indication: DEPRESSION
     Dosage: UNK
     Route: 048
     Dates: start: 20110211
  2. MEILAX [Concomitant]
     Dosage: UNK
     Dates: start: 20110210
  3. CHAMPIX [Suspect]
     Indication: SMOKING CESSATION THERAPY
     Dosage: UNK
     Route: 048
     Dates: start: 20110115, end: 20110117
  4. SEROQUEL [Concomitant]
     Dosage: UNK
     Dates: start: 20110210
  5. DOGMATYL [Concomitant]
     Dosage: 50 MG, 3X/DAY
     Dates: start: 20110125
  6. SEROQUEL [Concomitant]
     Indication: INSOMNIA
     Dosage: UNK
     Dates: start: 20110118
  7. BROTIZOLAM [Concomitant]
     Dosage: UNK
     Dates: start: 20110118
  8. ROHIPNOL [Concomitant]
     Indication: INSOMNIA
     Dosage: UNK
     Dates: start: 20110118

REACTIONS (11)
  - ANXIETY [None]
  - INSOMNIA [None]
  - DISTURBANCE IN ATTENTION [None]
  - THINKING ABNORMAL [None]
  - SUICIDE ATTEMPT [None]
  - APATHY [None]
  - FEELING ABNORMAL [None]
  - DISORIENTATION [None]
  - INTENTIONAL OVERDOSE [None]
  - DEPRESSION [None]
  - JUDGEMENT IMPAIRED [None]
